FAERS Safety Report 23609304 (Version 1)
Quarter: 2024Q1

REPORT INFORMATION
  Report Type: Spontaneous
  Country: ZA (occurrence: ZA)
  Receive Date: 20240308
  Receipt Date: 20240308
  Transmission Date: 20240410
  Serious: Yes (Hospitalization)
  Sender: FDA-Public Use
  Company Number: ZA-ABBOTT-2024A-1378529

PATIENT
  Age: 79 Year
  Sex: Female

DRUGS (8)
  1. CREON [Suspect]
     Active Substance: PANCRELIPASE AMYLASE\PANCRELIPASE LIPASE\PANCRELIPASE PROTEASE
     Indication: Product used for unknown indication
     Dosage: 10000 (150 MG OF PANCREATIN)
     Route: 048
     Dates: start: 202311, end: 202311
  2. CETIRIZINE HYDROCHLORIDE [Concomitant]
     Active Substance: CETIRIZINE HYDROCHLORIDE
     Indication: Hypersensitivity
     Dosage: AS PER PACKAGE INSERT
     Route: 048
  3. PERINDOPRIL ARGININE [Concomitant]
     Active Substance: PERINDOPRIL ARGININE
     Indication: Hypertension
  4. Amloc [Concomitant]
     Indication: Hypertension
     Route: 048
  5. ZOLPIDEM TARTRATE JG [Concomitant]
     Indication: Insomnia
     Dosage: AT NIGHT.
     Route: 048
  6. ELOZART [Concomitant]
     Indication: Product used for unknown indication
     Dosage: AS PRESCRIBED
     Route: 048
  7. AMLODIPINE BESYLATE\PERINDOPRIL ARGININE [Concomitant]
     Active Substance: AMLODIPINE BESYLATE\PERINDOPRIL ARGININE
     Indication: Hypertension
     Dosage: 5/5 MG TAKE ONE TABLET DAILY
     Route: 048
  8. BISOPROLOL FUMARATE\HYDROCHLOROTHIAZIDE [Concomitant]
     Active Substance: BISOPROLOL FUMARATE\HYDROCHLOROTHIAZIDE
     Indication: Hypertension
     Dosage: 5/6.25 MG TAKE ONE ?TABLET ONCE DAILY
     Route: 048

REACTIONS (2)
  - Surgery [Unknown]
  - Hospitalisation [Unknown]

NARRATIVE: CASE EVENT DATE: 20240228
